FAERS Safety Report 9374032 (Version 1)
Quarter: 2013Q2

REPORT INFORMATION
  Report Type: Spontaneous
  Country: GB (occurrence: GB)
  Receive Date: 20130628
  Receipt Date: 20130628
  Transmission Date: 20140414
  Serious: Yes (Other)
  Sender: FDA-Public Use
  Company Number: GB-009507513-1306GBR011634

PATIENT
  Age: 64 Year
  Sex: Female
  Weight: 60 kg

DRUGS (8)
  1. DEXAMETHASONE TABLETS BP 2.0MG [Suspect]
  2. PREDNISOLONE [Suspect]
  3. DOXORUBICIN [Suspect]
  4. ADCETRIS [Suspect]
     Indication: ANAPLASTIC LARGE CELL LYMPHOMA T- AND NULL-CELL TYPES
     Dosage: 1.8 MG/KG, UNK
     Route: 042
     Dates: start: 20120627, end: 201304
  5. VINCRISTINE SULFATE [Suspect]
     Indication: PRODUCT USED FOR UNKNOWN INDICATION
  6. CISPLATIN [Suspect]
     Indication: PRODUCT USED FOR UNKNOWN INDICATION
  7. CYCLOPHOSPHAMIDE [Suspect]
     Indication: PRODUCT USED FOR UNKNOWN INDICATION
  8. CYTARABINE [Suspect]
     Indication: PRODUCT USED FOR UNKNOWN INDICATION

REACTIONS (1)
  - Thrombocytopenia [Unknown]
